FAERS Safety Report 10040764 (Version 1)
Quarter: 2014Q1

REPORT INFORMATION
  Report Type: Report from Study
  Country: CA (occurrence: CA)
  Receive Date: 20140327
  Receipt Date: 20140327
  Transmission Date: 20141002
  Serious: Yes (Other)
  Sender: FDA-Public Use
  Company Number: CA-JNJFOC-20140307160

PATIENT
  Age: 27 Year
  Sex: Female

DRUGS (7)
  1. REMICADE [Suspect]
     Indication: COLITIS ULCERATIVE
     Route: 042
     Dates: start: 20121113
  2. IMURAN [Concomitant]
     Dosage: 2 TABLETS ONCE A DAY.
     Route: 065
  3. CALCIUM [Concomitant]
     Dosage: DOSE: 500 (UNITS UNSPECIFIED)
     Route: 065
  4. MICRONOR [Concomitant]
     Dosage: DOSE: 28 (UNITS UNSPECIFIED)
     Route: 065
  5. VITAMIN D [Concomitant]
     Route: 065
  6. FERROUS SULPHATE [Concomitant]
     Route: 065
  7. ACTONEL [Concomitant]
     Route: 065

REACTIONS (1)
  - Cytomegalovirus infection [Recovering/Resolving]
